FAERS Safety Report 16498700 (Version 1)
Quarter: 2019Q2

REPORT INFORMATION
  Report Type: Spontaneous
  Country: US (occurrence: US)
  Receive Date: 20190629
  Receipt Date: 20190629
  Transmission Date: 20190711
  Serious: Yes (Other)
  Sender: FDA-Public Use
  Company Number: US-AMGEN-USASP2019099886

PATIENT
  Age: 65 Year
  Sex: Female

DRUGS (1)
  1. PROLIA [Suspect]
     Active Substance: DENOSUMAB
     Indication: OSTEOPOROSIS POSTMENOPAUSAL
     Dosage: 60 UNK
     Route: 065

REACTIONS (5)
  - Tooth extraction [Unknown]
  - Impaired healing [Unknown]
  - Dental implantation [Unknown]
  - Foot fracture [Unknown]
  - Alveolar osteitis [Unknown]

NARRATIVE: CASE EVENT DATE: 20190315
